FAERS Safety Report 17603782 (Version 1)
Quarter: 2020Q1

REPORT INFORMATION
  Report Type: Spontaneous
  Country: US (occurrence: US)
  Receive Date: 20200327
  Receipt Date: 20200327
  Transmission Date: 20200409
  Serious: Yes (Death)
  Sender: FDA-Public Use
  Company Number: None

PATIENT
  Age: 55 Year
  Sex: Female

DRUGS (1)
  1. ZOLEDRONIC ACID 4MG/5ML SDV [Suspect]
     Active Substance: ZOLEDRONIC ACID
     Route: 030
     Dates: start: 202001

REACTIONS (1)
  - Death [None]

NARRATIVE: CASE EVENT DATE: 202003
